FAERS Safety Report 10923494 (Version 2)
Quarter: 2015Q2

REPORT INFORMATION
  Report Type: Spontaneous
  Country: US (occurrence: US)
  Receive Date: 20150318
  Receipt Date: 20150526
  Transmission Date: 20150821
  Serious: No
  Sender: FDA-Public Use
  Company Number: US-JNJFOC-20131116538

PATIENT
  Sex: Female

DRUGS (1)
  1. HALDOL [Suspect]
     Active Substance: HALOPERIDOL
     Indication: PRODUCT USED FOR UNKNOWN INDICATION
     Route: 065

REACTIONS (16)
  - Eye movement disorder [Unknown]
  - Delusion [Unknown]
  - Abnormal behaviour [Unknown]
  - Fear [Unknown]
  - Disturbance in attention [Unknown]
  - Drug ineffective [Unknown]
  - Poor quality sleep [Unknown]
  - Tremor [Unknown]
  - Psychomotor hyperactivity [Unknown]
  - Blepharospasm [Unknown]
  - Photophobia [Unknown]
  - Speech disorder [Unknown]
  - Anxiety [Unknown]
  - Visual impairment [Unknown]
  - Slow response to stimuli [Unknown]
  - Muscle twitching [Unknown]
